FAERS Safety Report 25432945 (Version 2)
Quarter: 2025Q2

REPORT INFORMATION
  Report Type: Spontaneous
  Country: US (occurrence: None)
  Receive Date: 20250613
  Receipt Date: 20250618
  Transmission Date: 20250716
  Serious: Yes (Hospitalization, Other)
  Sender: MDD OPERATIONS
  Company Number: US-MDD US Operations-MDD202504-001157

PATIENT
  Age: 78 Year
  Sex: Female

DRUGS (2)
  1. APOKYN [Suspect]
     Active Substance: APOMORPHINE HYDROCHLORIDE
     Indication: Parkinson^s disease
  2. APOKYN [Suspect]
     Active Substance: APOMORPHINE HYDROCHLORIDE
     Route: 058
     Dates: start: 20241015

REACTIONS (9)
  - Skin laceration [Unknown]
  - Fall [Unknown]
  - Hallucination [Unknown]
  - Syncope [Recovered/Resolved]
  - Amnesia [Unknown]
  - Visual impairment [Unknown]
  - Blood pressure decreased [Unknown]
  - Confusional state [Unknown]
  - Injection site reaction [Unknown]

NARRATIVE: CASE EVENT DATE: 20250101
